FAERS Safety Report 5048488-X (Version None)
Quarter: 2006Q3

REPORT INFORMATION
  Report Type: 
  Country: None (occurrence: None)
  Receive Date: 20060705
  Receipt Date: 20060615
  Transmission Date: 20061208
  Serious: Yes (Other)
  Sender: FDA-Public Use
  Company Number: 8017469

PATIENT

DRUGS (1)
  1. THEOPHYLLINE [Suspect]

REACTIONS (3)
  - BRAIN OEDEMA [None]
  - FEBRILE CONVULSION [None]
  - GRAND MAL CONVULSION [None]
